FAERS Safety Report 5771703-1 (Version None)
Quarter: 2008Q2

REPORT INFORMATION
  Report Type: 
  Country: None (occurrence: None)
  Receive Date: 20080613
  Receipt Date: 20080609
  Transmission Date: 20081010
  Serious: Yes (Other)
  Sender: FDA-Public Use
  Company Number: US-BRISTOL-MYERS SQUIBB COMPANY-14119861

PATIENT
  Age: 70 Year
  Sex: Female

DRUGS (7)
  1. IXEMPRA KIT [Suspect]
     Indication: BREAST CANCER
     Dosage: CYCLES-3-4;1 DOSAGE FORM = 75 MG IN 250ML LR OVER 6
     Route: 042
     Dates: start: 20080111, end: 20080111
  2. LISINOPRIL [Suspect]
     Dates: end: 20080118
  3. HYDROCHLOROTHIAZIDE [Suspect]
     Dates: end: 20080501
  4. HISTAMINE ANTAGONIST [Concomitant]
     Indication: PREMEDICATION
  5. OMEPRAZOLE [Concomitant]
  6. COMPAZINE [Concomitant]
  7. ASPIRIN [Concomitant]
     Dates: end: 20080128

REACTIONS (2)
  - CYANOSIS [None]
  - ORTHOSTATIC HYPOTENSION [None]
